FAERS Safety Report 20840511 (Version 1)
Quarter: 2022Q2

REPORT INFORMATION
  Report Type: Spontaneous
  Country: US (occurrence: None)
  Receive Date: 20220517
  Receipt Date: 20220517
  Transmission Date: 20220721
  Serious: No
  Sender: FDA-Public Use
  Company Number: None

PATIENT
  Sex: Female

DRUGS (1)
  1. MELOXICAM [Suspect]
     Active Substance: MELOXICAM
     Dosage: FREQUENCY : DAILY;?
     Route: 048

REACTIONS (6)
  - Fluid retention [None]
  - Urinary tract disorder [None]
  - Pain [None]
  - Manufacturing issue [None]
  - Product quality issue [None]
  - Musculoskeletal disorder [None]
